FAERS Safety Report 7038936-8 (Version None)
Quarter: 2010Q4

REPORT INFORMATION
  Report Type: 
  Country: None (occurrence: None)
  Receive Date: 20101012
  Receipt Date: 20100928
  Transmission Date: 20110411
  Serious: Yes (Hospitalization, Other)
  Sender: FDA-Public Use
  Company Number: SG-PAR PHARMACEUTICAL, INC-2010SCPR002118

PATIENT
  Age: 53 Year
  Sex: Male

DRUGS (4)
  1. RISPERIDONE [Suspect]
     Indication: PRODUCT USED FOR UNKNOWN INDICATION
     Dosage: 1 MG, EVERY NIGHT
     Route: 065
     Dates: start: 20090521
  2. HALOPERIDOL [Suspect]
     Indication: PSYCHOTIC DISORDER
     Dosage: 5 MG, EVERY NIGHT
     Route: 065
  3. LORAZEPAM [Suspect]
     Indication: PSYCHOTIC DISORDER
     Dosage: 0.5 MG, TWICE DAILY
     Route: 065
  4. ATENOLOL [Concomitant]
     Indication: PRODUCT USED FOR UNKNOWN INDICATION
     Dosage: UNK
     Route: 065

REACTIONS (5)
  - BLOOD SODIUM DECREASED [None]
  - NEUROLEPTIC MALIGNANT SYNDROME [None]
  - PNEUMONIA ASPIRATION [None]
  - RESPIRATORY ALKALOSIS [None]
  - VOMITING [None]
